FAERS Safety Report 6658079-2 (Version None)
Quarter: 2010Q1

REPORT INFORMATION
  Report Type: 
  Country: None (occurrence: None)
  Receive Date: 20100330
  Receipt Date: 20100318
  Transmission Date: 20100710
  Serious: Yes (Hospitalization)
  Sender: FDA-Public Use
  Company Number: GB-MERCK-1003USA03919

PATIENT
  Age: 46 Year
  Sex: Male

DRUGS (9)
  1. DECADRON [Suspect]
     Indication: FATIGUE
     Route: 048
  2. DECADRON [Suspect]
     Route: 048
  3. DECADRON [Suspect]
     Indication: ROUTINE HEALTH MAINTENANCE
     Route: 048
  4. DECADRON [Suspect]
     Route: 048
  5. MORPHINE SULFATE [Concomitant]
     Indication: PAIN
     Route: 065
  6. NAPROXEN [Concomitant]
     Indication: PAIN
     Route: 065
  7. WARFARIN [Concomitant]
     Indication: DEEP VEIN THROMBOSIS
     Route: 065
  8. WARFARIN [Concomitant]
     Indication: PULMONARY EMBOLISM
     Route: 065
  9. MOVICOL [Suspect]
     Indication: CONSTIPATION
     Route: 065

REACTIONS (1)
  - HYPONATRAEMIA [None]
